FAERS Safety Report 10687567 (Version 1)
Quarter: 2014Q4

REPORT INFORMATION
  Report Type: Spontaneous
  Country: NL (occurrence: None)
  Receive Date: 20141230
  Receipt Date: 20141230
  Transmission Date: 20150529
  Serious: Yes (Other)
  Sender: FDA-Public Use
  Company Number: 2014NL010364

PATIENT
  Sex: Male

DRUGS (1)
  1. ELIGARD [Suspect]
     Active Substance: LEUPROLIDE ACETATE
     Indication: PROSTATE CANCER
     Dosage: ONCE IN 6 MONTHS
     Route: 058
     Dates: start: 20130704, end: 20140706

REACTIONS (2)
  - Malignant neoplasm progression [None]
  - Prostate cancer [None]
